FAERS Safety Report 6983380-2 (Version None)
Quarter: 2010Q3

REPORT INFORMATION
  Report Type: 
  Country: None (occurrence: None)
  Receive Date: 20100914
  Receipt Date: 20100910
  Transmission Date: 20110219
  Serious: Yes (Hospitalization)
  Sender: FDA-Public Use
  Company Number: SE-BRISTOL-MYERS SQUIBB COMPANY-15261670

PATIENT
  Age: 30 Year
  Sex: Male

DRUGS (5)
  1. BUSPAR [Suspect]
     Dosage: 1DF=10MGX2X3/DAY
     Route: 013
  2. METHYLPHENIDATE [Concomitant]
  3. CLONAZEPAM [Concomitant]
  4. PREGABALIN [Concomitant]
  5. DEXTROPROPOXYPHENE [Concomitant]

REACTIONS (2)
  - MEDICATION ERROR [None]
  - PERIPHERAL ISCHAEMIA [None]
